FAERS Safety Report 10051390 (Version 1)
Quarter: 2014Q2

REPORT INFORMATION
  Report Type: Spontaneous
  Country: US (occurrence: US)
  Receive Date: 20140401
  Receipt Date: 20140401
  Transmission Date: 20141212
  Serious: No
  Sender: FDA-Public Use
  Company Number: US-PFIZER INC-2014090133

PATIENT
  Age: 4 Year
  Sex: Male

DRUGS (1)
  1. GENOTROPIN MINIQUICK [Suspect]
     Indication: GROWTH HORMONE DEFICIENCY
     Dosage: 0.6 MG, DAILY
     Dates: start: 20120627, end: 20140328

REACTIONS (1)
  - Back pain [Unknown]
